FAERS Safety Report 14009117 (Version 4)
Quarter: 2017Q4

REPORT INFORMATION
  Report Type: Spontaneous
  Country: US (occurrence: US)
  Receive Date: 20170925
  Receipt Date: 20171114
  Transmission Date: 20180321
  Serious: No
  Sender: FDA-Public Use
  Company Number: US-PFIZER INC-2017413175

PATIENT
  Age: 59 Year
  Sex: Female

DRUGS (3)
  1. MARCAINE [Suspect]
     Active Substance: BUPIVACAINE HYDROCHLORIDE
     Dosage: UNK
     Route: 014
     Dates: start: 201609
  2. KENALOG [Suspect]
     Active Substance: TRIAMCINOLONE ACETONIDE
     Dosage: UNK
  3. LIDOCAINE HCL [Suspect]
     Active Substance: LIDOCAINE HYDROCHLORIDE
     Dosage: UNK

REACTIONS (10)
  - Burning sensation [Unknown]
  - Pain in extremity [Unknown]
  - Erythema [Unknown]
  - Poor quality drug administered [Unknown]
  - Dysstasia [Unknown]
  - Vein discolouration [Unknown]
  - Vein disorder [Unknown]
  - Product quality issue [Unknown]
  - Product use issue [Unknown]
  - Urinary incontinence [Unknown]

NARRATIVE: CASE EVENT DATE: 2003
